FAERS Safety Report 5126291-X (Version None)
Quarter: 2006Q3

REPORT INFORMATION
  Report Type: 
  Country: None (occurrence: None)
  Receive Date: 20060825
  Receipt Date: 20050929
  Transmission Date: 20061208
  Serious: Yes (Other)
  Sender: FDA-Public Use
  Company Number: 21006

PATIENT
  Age: 32 Year
  Sex: Female
  Weight: 61.6892 kg

DRUGS (8)
  1. BUTORPHANOL TARATRATE [Suspect]
     Indication: BACK DISORDER
     Dosage: 1ML(2MG/ML CONCENTRATION) IN
     Dates: start: 20050926
  2. BUTORPHANOL TARATRATE [Suspect]
     Indication: MUSCULOSKELETAL DISCOMFORT
     Dosage: 1ML(2MG/ML CONCENTRATION) IN
     Dates: start: 20050926
  3. SOMA [Concomitant]
  4. KLONOPIN [Concomitant]
  5. ALBUTEROL [Concomitant]
  6. SINGULAIR [Concomitant]
  7. TOPAMAX [Concomitant]
  8. DILANTIN [Concomitant]

REACTIONS (1)
  - INJECTION SITE REACTION [None]
